FAERS Safety Report 5558134-4 (Version None)
Quarter: 2007Q4

REPORT INFORMATION
  Report Type: 
  Country: None (occurrence: None)
  Receive Date: 20071211
  Receipt Date: 20070514
  Transmission Date: 20080405
  Serious: Yes (Death, Hospitalization)
  Sender: FDA-Public Use
  Company Number: 2006BI009466

PATIENT
  Age: 44 Year
  Sex: Female

DRUGS (6)
  1. AVONEX [Suspect]
     Indication: MULTIPLE SCLEROSIS
     Dosage: 30 UG;QW;
     Dates: start: 20020801, end: 20030101
  2. AVONEX [Suspect]
     Indication: MULTIPLE SCLEROSIS
     Dosage: 30 UG;QW;IM
     Route: 030
     Dates: start: 20030101, end: 20060401
  3. ZOLOFT [Concomitant]
  4. RIVOTRIL [Concomitant]
  5. IMOVANE [Concomitant]
  6. 3,4-DIAMINOPYRIDINE [Concomitant]

REACTIONS (9)
  - CARDIAC ARREST [None]
  - CORONARY ARTERY THROMBOSIS [None]
  - FOOT FRACTURE [None]
  - HEADACHE [None]
  - MYOCARDIAL INFARCTION [None]
  - PARAESTHESIA [None]
  - SHOCK [None]
  - SYNCOPE VASOVAGAL [None]
  - VENTRICULAR FIBRILLATION [None]
